FAERS Safety Report 25882281 (Version 3)
Quarter: 2025Q4

REPORT INFORMATION
  Report Type: Spontaneous
  Country: JP (occurrence: JP)
  Receive Date: 20251006
  Receipt Date: 20251030
  Transmission Date: 20260118
  Serious: Yes (Death, Hospitalization, Other)
  Sender: JOHNSON AND JOHNSON
  Company Number: JP-JNJFOC-20251002885

PATIENT
  Age: 8 Decade
  Sex: Male

DRUGS (3)
  1. RYBREVANT [Suspect]
     Active Substance: AMIVANTAMAB-VMJW
     Indication: EGFR gene mutation
     Dosage: DOSE UNKNOWN
     Route: 041
     Dates: start: 2025
  2. PEMETREXED [Suspect]
     Active Substance: PEMETREXED
     Indication: EGFR gene mutation
     Route: 041
     Dates: start: 2025
  3. CARBOPLATIN [Concomitant]
     Active Substance: CARBOPLATIN
     Indication: EGFR gene mutation
     Dosage: AUC5MG
     Route: 041
     Dates: start: 2025

REACTIONS (5)
  - Renal failure [Fatal]
  - Dermatitis acneiform [Recovering/Resolving]
  - Skin bacterial infection [Recovered/Resolved]
  - Blood albumin decreased [Not Recovered/Not Resolved]
  - Acquired perforating dermatosis [Recovering/Resolving]

NARRATIVE: CASE EVENT DATE: 20250530
